FAERS Safety Report 6298825-3 (Version None)
Quarter: 2009Q3

REPORT INFORMATION
  Report Type: 
  Country: None (occurrence: None)
  Receive Date: 20090805
  Receipt Date: 20090805
  Transmission Date: 20100115
  Serious: Yes (Other)
  Sender: FDA-Public Use
  Company Number: None

PATIENT
  Sex: Male

DRUGS (2)
  1. RISPERIDONE [Suspect]
     Indication: ANTISOCIAL PERSONALITY DISORDER
     Dosage: 1 MG ONE QAM + 2HS PO } 1 YR
     Route: 048
  2. RISPERIDONE [Suspect]
     Indication: CONDUCT DISORDER
     Dosage: 1 MG ONE QAM + 2HS PO } 1 YR
     Route: 048

REACTIONS (3)
  - ABNORMAL BEHAVIOUR [None]
  - AGGRESSION [None]
  - PRODUCT SUBSTITUTION ISSUE [None]
